FAERS Safety Report 9992742 (Version 1)
Quarter: 2014Q1

REPORT INFORMATION
  Report Type: Spontaneous
  Country: US (occurrence: US)
  Receive Date: 20140310
  Receipt Date: 20140310
  Transmission Date: 20141002
  Serious: No
  Sender: FDA-Public Use
  Company Number: US-PFIZER INC-2014068456

PATIENT
  Age: 50 Year
  Sex: Female
  Weight: 104.31 kg

DRUGS (2)
  1. LYRICA [Suspect]
     Indication: NEURALGIA
     Dosage: 150 MG, 3X/DAY
     Dates: start: 2011
  2. LYRICA [Suspect]
     Indication: FIBROMYALGIA

REACTIONS (3)
  - Drug withdrawal syndrome [Unknown]
  - Malaise [Unknown]
  - Feeling abnormal [Unknown]
